FAERS Safety Report 16129259 (Version 1)
Quarter: 2019Q1

REPORT INFORMATION
  Report Type: Spontaneous
  Country: EG (occurrence: EG)
  Receive Date: 20190328
  Receipt Date: 20190328
  Transmission Date: 20190418
  Serious: Yes (Death, Hospitalization, Other)
  Sender: FDA-Public Use
  Company Number: EG-BAYER-2019-054037

PATIENT
  Sex: Male

DRUGS (2)
  1. NEXAVAR [Suspect]
     Active Substance: SORAFENIB
     Indication: HEPATOCELLULAR CARCINOMA
     Dosage: 200 MG, BID
     Route: 048
     Dates: start: 20180512, end: 20180515
  2. NEXAVAR [Suspect]
     Active Substance: SORAFENIB
     Indication: HEPATOCELLULAR CARCINOMA
     Dosage: 400 UNK
     Route: 048
     Dates: end: 20181223

REACTIONS (21)
  - Hepatorenal failure [Fatal]
  - General physical health deterioration [None]
  - Blood thyroid stimulating hormone increased [None]
  - Metastases to central nervous system [None]
  - Cerebral fungal infection [None]
  - VIth nerve paralysis [None]
  - Diabetes mellitus [None]
  - Diarrhoea [None]
  - Eye pain [None]
  - Oedema peripheral [None]
  - Organ failure [Fatal]
  - Weight decreased [None]
  - Granuloma [None]
  - Hemianaesthesia [None]
  - Ascites [None]
  - Persistent depressive disorder [None]
  - Fatigue [None]
  - Diplopia [None]
  - Intracranial mass [None]
  - Blindness [None]
  - Eyelid ptosis [None]

NARRATIVE: CASE EVENT DATE: 201810
